FAERS Safety Report 8425991-3 (Version None)
Quarter: 2012Q2

REPORT INFORMATION
  Report Type: 
  Country: None (occurrence: None)
  Receive Date: 20120601
  Receipt Date: 20120524
  Transmission Date: 20120825
  Serious: Yes (Life-Threatening)
  Sender: FDA-Public Use
  Company Number: WAES 1204USA01148

PATIENT
  Age: 68 Year
  Sex: Male

DRUGS (7)
  1. TIGASON [Concomitant]
  2. CONIEL [Concomitant]
  3. ZOLINZA [Suspect]
     Indication: MYCOSIS FUNGOIDES
     Dosage: 400 MG/DAILY, PO, 300 MG/DAILY, 200 MG/DAILY, PO
     Route: 048
     Dates: start: 20120210, end: 20120224
  4. ZOLINZA [Suspect]
     Indication: MYCOSIS FUNGOIDES
     Dosage: 400 MG/DAILY, PO, 300 MG/DAILY, 200 MG/DAILY, PO
     Route: 048
     Dates: start: 20111227, end: 20120209
  5. ZOLINZA [Suspect]
     Indication: MYCOSIS FUNGOIDES
     Dosage: 400 MG/DAILY, PO, 300 MG/DAILY, 200 MG/DAILY, PO
     Route: 048
     Dates: start: 20111122, end: 20111226
  6. TAMSULOSIN HCL [Concomitant]
  7. PRINIVIL [Concomitant]

REACTIONS (5)
  - THROMBOCYTOPENIA [None]
  - LYMPHOCYTE MORPHOLOGY ABNORMAL [None]
  - CONDITION AGGRAVATED [None]
  - MYCOSIS FUNGOIDES [None]
  - HAEMOLYTIC ANAEMIA [None]
